FAERS Safety Report 8428905-5 (Version None)
Quarter: 2012Q2

REPORT INFORMATION
  Report Type: 
  Country: None (occurrence: None)
  Receive Date: 20120612
  Receipt Date: 20120530
  Transmission Date: 20120825
  Serious: Yes (Hospitalization)
  Sender: FDA-Public Use
  Company Number: US-SHIRE-ALL1-2012-01862

PATIENT
  Sex: Male
  Weight: 81.633 kg

DRUGS (15)
  1. PHENOBARBITAL TAB [Concomitant]
     Indication: DYSKINESIA
     Dosage: UNK, UNKNOWN(DOSE DECREASED)
     Route: 048
     Dates: start: 20120327
  2. CARBAMAZEPINE [Suspect]
     Indication: EPILEPSY
     Dosage: 200 MG, 4X/DAY:QID
     Route: 048
     Dates: start: 20120101, end: 20120327
  3. HYDROCHLOROTHIAZIDE (HCTZ WATER PILL) [Concomitant]
     Indication: ADVERSE EVENT
     Dosage: 12.5 MG, UNKNOWN
     Route: 065
     Dates: start: 20090101
  4. LAMICTAL [Suspect]
     Indication: EPILEPSY
     Dosage: UNK, UNKNOWN
     Route: 048
     Dates: start: 20050101, end: 20120327
  5. PHENOBARBITAL TAB [Concomitant]
     Indication: STRABISMUS
  6. LAMICTAL [Suspect]
     Indication: VISION BLURRED
  7. PHENOBARBITAL TAB [Concomitant]
     Indication: EPILEPSY
     Dosage: UNK, UNKNOWN
     Route: 048
     Dates: start: 19640101, end: 20120326
  8. PRAVASTATIN [Concomitant]
     Indication: ADVERSE EVENT
     Dosage: 40 MG, UNKNOWN
     Route: 065
     Dates: start: 20090101
  9. VITAMIN D [Concomitant]
     Indication: ADVERSE EVENT
     Dosage: NK5000 IU, UNKNOWN
     Route: 065
     Dates: start: 20090101
  10. LAMICTAL [Suspect]
     Indication: DYSKINESIA
     Dosage: UNK UNK, UNKNOWN
  11. PHENOBARBITAL TAB [Concomitant]
     Indication: VISION BLURRED
  12. ASPIRIN [Concomitant]
     Indication: ADVERSE EVENT
     Dosage: 81 MG, UNKNOWN
     Route: 065
     Dates: start: 20090101
  13. PHENOBARBITAL TAB [Concomitant]
     Indication: MUSCLE TWITCHING
  14. LAMICTAL [Suspect]
     Indication: MUSCLE TWITCHING
  15. LAMICTAL [Suspect]
     Indication: STRABISMUS

REACTIONS (8)
  - DRUG INTERACTION [None]
  - CONVULSION [None]
  - VISION BLURRED [None]
  - MUSCLE TWITCHING [None]
  - INAPPROPRIATE SCHEDULE OF DRUG ADMINISTRATION [None]
  - DYSKINESIA [None]
  - STRABISMUS [None]
  - DRUG INEFFECTIVE [None]
